FAERS Safety Report 18435245 (Version 1)
Quarter: 2020Q4

REPORT INFORMATION
  Report Type: Spontaneous
  Country: US (occurrence: US)
  Receive Date: 20201027
  Receipt Date: 20201027
  Transmission Date: 20210114
  Serious: No
  Sender: FDA-Public Use
  Company Number: None

PATIENT
  Sex: Female

DRUGS (20)
  1. ALPRAZOLAM. [Concomitant]
     Active Substance: ALPRAZOLAM
  2. BENLYSTA [Concomitant]
     Active Substance: BELIMUMAB
  3. GIANVI [Concomitant]
     Active Substance: DROSPIRENONE\ETHINYL ESTRADIOL
  4. SYMBICORT [Concomitant]
     Active Substance: BUDESONIDE\FORMOTEROL FUMARATE DIHYDRATE
  5. HYDROXYCHLOR [Concomitant]
     Active Substance: HYDROXYCHLOROQUINE
  6. LEVOFLOXACIN. [Concomitant]
     Active Substance: LEVOFLOXACIN
  7. NICTOTIN TD OXYCOD [Concomitant]
  8. VITAMIN C [Concomitant]
     Active Substance: ASCORBIC ACID
  9. FAMOTIDINE. [Concomitant]
     Active Substance: FAMOTIDINE
  10. MONTELUKAT, MUCINEX [Concomitant]
  11. VITAMIN B12 [Concomitant]
     Active Substance: CYANOCOBALAMIN
  12. VITAMIN D [Concomitant]
     Active Substance: VITAMIN D NOS
  13. PROPRANOLOL [Concomitant]
     Active Substance: PROPRANOLOL HYDROCHLORIDE
  14. BENLYSTA [Suspect]
     Active Substance: BELIMUMAB
     Indication: SYSTEMIC LUPUS ERYTHEMATOSUS
     Dosage: ?          OTHER FREQUENCY:WEEKLY;?
     Route: 058
     Dates: start: 20200925
  15. TOBI POD [Concomitant]
  16. DULOXETINE. [Concomitant]
     Active Substance: DULOXETINE
  17. ALBUTEROL. [Concomitant]
     Active Substance: ALBUTEROL
  18. IPRATROPIUM [Concomitant]
     Active Substance: IPRATROPIUM
  19. METOCLOPRAM [Concomitant]
     Active Substance: METOCLOPRAMIDE
  20. PREDINSONE [Concomitant]
     Active Substance: PREDNISONE

REACTIONS (2)
  - Systemic lupus erythematosus [None]
  - Pneumonia [None]
